FAERS Safety Report 8709850 (Version 2)
Quarter: 2012Q4

REPORT INFORMATION
  Report Type: Report from Study
  Country: CA (occurrence: CA)
  Receive Date: 20120806
  Receipt Date: 20121003
  Transmission Date: 20130627
  Serious: Yes (Other)
  Sender: FDA-Public Use
  Company Number: PHHY2012CA067079

PATIENT
  Sex: Male

DRUGS (1)
  1. CLOZARIL [Suspect]
     Dosage: 425 mg, (25 mg in morning and 400 mg in night)
     Route: 048
     Dates: start: 19930614

REACTIONS (2)
  - Psychiatric decompensation [Unknown]
  - Haematology test abnormal [Unknown]
